FAERS Safety Report 13976433 (Version 1)
Quarter: 2017Q3

REPORT INFORMATION
  Report Type: Spontaneous
  Country: US (occurrence: US)
  Receive Date: 20170914
  Receipt Date: 20170914
  Transmission Date: 20171128
  Serious: No
  Sender: FDA-Public Use
  Company Number: US-ASTELLAS-2017US020417

PATIENT
  Age: 72 Year
  Sex: Male

DRUGS (4)
  1. XTANDI [Suspect]
     Active Substance: ENZALUTAMIDE
     Route: 065
     Dates: start: 20170423
  2. XTANDI [Suspect]
     Active Substance: ENZALUTAMIDE
     Route: 065
     Dates: start: 20170402
  3. XTANDI [Suspect]
     Active Substance: ENZALUTAMIDE
     Indication: PROSTATE CANCER
     Route: 065
     Dates: start: 20170218, end: 20170324
  4. XTANDI [Suspect]
     Active Substance: ENZALUTAMIDE
     Route: 065
     Dates: start: 20170521

REACTIONS (6)
  - Joint swelling [Not Recovered/Not Resolved]
  - Muscle tightness [Recovering/Resolving]
  - Peripheral swelling [Not Recovered/Not Resolved]
  - Underdose [Unknown]
  - Nausea [Recovering/Resolving]
  - Joint stiffness [Recovering/Resolving]

NARRATIVE: CASE EVENT DATE: 20170313
